FAERS Safety Report 4435497-4 (Version None)
Quarter: 2004Q3

REPORT INFORMATION
  Report Type: 
  Country: None (occurrence: None)
  Receive Date: 20040826
  Receipt Date: 20040812
  Transmission Date: 20050211
  Serious: Yes (Hospitalization)
  Sender: FDA-Public Use
  Company Number: 2004UW03111

PATIENT
  Age: 79 Year
  Sex: Female
  Weight: 77 kg

DRUGS (9)
  1. NOLVADEX [Suspect]
     Indication: BREAST CANCER
     Dosage: 20 MG QD PO
     Route: 048
     Dates: start: 20010614
  2. METOPROLOL [Concomitant]
  3. RANITIDINE [Concomitant]
  4. AMIZIDE [Concomitant]
  5. VITALUX [Concomitant]
  6. FOOD SUPPLEMENT [Concomitant]
  7. VITAMIN E [Concomitant]
  8. POTASSIUM CHLORIDE [Concomitant]
  9. TYLENOL [Concomitant]

REACTIONS (4)
  - FALL [None]
  - HYPERTROPHY [None]
  - SPINAL COMPRESSION FRACTURE [None]
  - SPINAL OSTEOARTHRITIS [None]
